FAERS Safety Report 8969209 (Version 1)
Quarter: 2012Q4

REPORT INFORMATION
  Report Type: 
  Country: US (occurrence: US)
  Receive Date: 20121218
  Receipt Date: 20121218
  Transmission Date: 20130627
  Serious: No
  Sender: FDA-Public Use
  Company Number: US-BRISTOL-MYERS SQUIBB COMPANY-16312324

PATIENT
  Age: 35 Year
  Sex: Female

DRUGS (7)
  1. ABILIFY [Suspect]
     Indication: BIPOLAR DISORDER
     Dosage: 10mg + after a week increased to 15mg
  2. KLONOPIN [Concomitant]
  3. LORTAB [Concomitant]
  4. TRAMADOL [Concomitant]
  5. ADDERALL [Concomitant]
  6. LAMICTAL [Concomitant]
  7. ZYRTEC [Concomitant]

REACTIONS (1)
  - Palpitations [Recovered/Resolved]
